FAERS Safety Report 19895669 (Version 1)
Quarter: 2021Q3

REPORT INFORMATION
  Report Type: Spontaneous
  Country: JP (occurrence: JP)
  Receive Date: 20210929
  Receipt Date: 20210929
  Transmission Date: 20211014
  Serious: Yes (Other)
  Sender: FDA-Public Use
  Company Number: JP-ACCORD-239829

PATIENT
  Age: 74 Year
  Sex: Female
  Weight: 57.9 kg

DRUGS (2)
  1. GEMCITABINE/GEMCITABINE HYDROCHLORIDE [Suspect]
     Active Substance: GEMCITABINE\GEMCITABINE HYDROCHLORIDE
     Indication: TRANSITIONAL CELL CANCER OF THE RENAL PELVIS AND URETER
  2. CISPLATIN. [Suspect]
     Active Substance: CISPLATIN
     Indication: TRANSITIONAL CELL CANCER OF THE RENAL PELVIS AND URETER

REACTIONS (1)
  - Duodenal ulcer [Recovering/Resolving]
